FAERS Safety Report 24007044 (Version 1)
Quarter: 2024Q2

REPORT INFORMATION
  Report Type: Spontaneous
  Country: PL (occurrence: PL)
  Receive Date: 20240624
  Receipt Date: 20240624
  Transmission Date: 20240716
  Serious: Yes (Other)
  Sender: FDA-Public Use
  Company Number: PL-GILEAD-2024-0677307

PATIENT
  Age: 52 Year
  Sex: Female

DRUGS (1)
  1. TRODELVY [Suspect]
     Active Substance: SACITUZUMAB GOVITECAN-HZIY
     Indication: Triple negative breast cancer
     Dosage: CYCLE 7 OF SG TREATMENT INITIATED AFTER RESOLUTION OF NEUTROPENIA
     Route: 065

REACTIONS (2)
  - Neutropenia [Recovered/Resolved]
  - Metastases to lung [Unknown]
